FAERS Safety Report 4472797-6 (Version None)
Quarter: 2004Q4

REPORT INFORMATION
  Report Type: 
  Country: None (occurrence: None)
  Receive Date: 20041012
  Receipt Date: 20041012
  Transmission Date: 20050328
  Serious: Yes (Other)
  Sender: FDA-Public Use
  Company Number: None

PATIENT
  Age: 37 Year
  Sex: Male
  Weight: 80.2867 kg

DRUGS (1)
  1. LARIAM [Suspect]
     Dosage: 1 WEEK ORAL
     Route: 048

REACTIONS (2)
  - PALPITATIONS [None]
  - TREMOR [None]
